FAERS Safety Report 7878560-8 (Version None)
Quarter: 2011Q4

REPORT INFORMATION
  Report Type: 
  Country: None (occurrence: None)
  Receive Date: 20111101
  Receipt Date: 20111024
  Transmission Date: 20120403
  Serious: Yes (Hospitalization, Other)
  Sender: FDA-Public Use
  Company Number: US-US-EMD SERONO, INC.-7090852

PATIENT
  Sex: Male

DRUGS (1)
  1. REBIF [Suspect]
     Indication: MULTIPLE SCLEROSIS
     Route: 058
     Dates: start: 20110801, end: 20111017

REACTIONS (3)
  - TYPE 1 DIABETES MELLITUS [None]
  - HEPATIC ENZYME INCREASED [None]
  - DIABETIC KETOACIDOSIS [None]
